FAERS Safety Report 24958882 (Version 1)
Quarter: 2025Q1

REPORT INFORMATION
  Report Type: Spontaneous
  Country: CA (occurrence: CA)
  Receive Date: 20250212
  Receipt Date: 20250212
  Transmission Date: 20250408
  Serious: Yes (Other)
  Sender: CSL BEHRING
  Company Number: CA-BEH-2025195000

PATIENT
  Age: 62 Year

DRUGS (1)
  1. HUMAN IMMUNOGLOBULIN G [Suspect]
     Active Substance: HUMAN IMMUNOGLOBULIN G
     Indication: Chronic inflammatory demyelinating polyradiculoneuropathy
     Route: 042

REACTIONS (5)
  - Hypervolaemia [Unknown]
  - Limb discomfort [Unknown]
  - Oedema peripheral [Unknown]
  - Pulmonary oedema [Unknown]
  - White blood cell count decreased [Unknown]
